FAERS Safety Report 23452543 (Version 1)
Quarter: 2024Q1

REPORT INFORMATION
  Report Type: Spontaneous
  Country: US (occurrence: US)
  Receive Date: 20240129
  Receipt Date: 20240129
  Transmission Date: 20240409
  Serious: Yes (Other)
  Sender: FDA-Public Use
  Company Number: US-002147023-NVSC2024US017927

PATIENT

DRUGS (1)
  1. LUTATHERA [Suspect]
     Active Substance: LUTETIUM OXODOTREOTIDE LU-177
     Indication: Gastroenteropancreatic neuroendocrine tumour disease
     Dosage: 200 MBQ, Q8 WEEKS(MECABEQUERAL) )
     Route: 042
     Dates: start: 20240121, end: 20240122

REACTIONS (2)
  - Cardio-respiratory distress [Unknown]
  - Cardiovascular disorder [Unknown]
